FAERS Safety Report 9808316 (Version 1)
Quarter: 2014Q1

REPORT INFORMATION
  Report Type: Spontaneous
  Country: US (occurrence: None)
  Receive Date: 20140108
  Receipt Date: 20140108
  Transmission Date: 20141002
  Serious: Yes (Hospitalization, Other)
  Sender: FDA-Public Use
  Company Number: DAV-AE-MTX-13-68

PATIENT
  Age: 54 Year
  Sex: Female

DRUGS (2)
  1. METHOTREXATE [Suspect]
     Indication: SARCOIDOSIS
     Dosage: 10 MG WEEKLY X2 YRS, UNK
  2. AMIODARONE 400MG [Concomitant]

REACTIONS (3)
  - Impaired gastric emptying [None]
  - Hepatic cirrhosis [None]
  - Hepatic steatosis [None]
